FAERS Safety Report 6863988-5 (Version None)
Quarter: 2010Q3

REPORT INFORMATION
  Report Type: 
  Country: None (occurrence: None)
  Receive Date: 20100721
  Receipt Date: 20080314
  Transmission Date: 20110219
  Serious: No
  Sender: FDA-Public Use
  Company Number: US-PFIZER INC-2008023770

PATIENT
  Sex: Male
  Weight: 79.545 kg

DRUGS (5)
  1. CHANTIX [Suspect]
     Indication: SMOKING CESSATION THERAPY
     Dates: start: 20080225
  2. ZOLOFT [Concomitant]
  3. DICLOFENAC DIETHYLAMINE [Concomitant]
  4. TOPAMAX [Concomitant]
  5. PERCOCET [Concomitant]

REACTIONS (2)
  - EJACULATION FAILURE [None]
  - ERECTILE DYSFUNCTION [None]
